FAERS Safety Report 24206948 (Version 1)
Quarter: 2024Q3

REPORT INFORMATION
  Report Type: Spontaneous
  Country: JP (occurrence: JP)
  Receive Date: 20240813
  Receipt Date: 20240813
  Transmission Date: 20241017
  Serious: Yes (Hospitalization, Other)
  Sender: BRISTOL MYERS SQUIBB
  Company Number: JP-BRISTOL-MYERS SQUIBB COMPANY-2024-125891

PATIENT
  Age: 74 Year
  Sex: Male
  Weight: 55.8 kg

DRUGS (6)
  1. YERVOY [Suspect]
     Active Substance: IPILIMUMAB
     Indication: Pleural mesothelioma malignant
     Dosage: ONE TIME DOSE
     Route: 041
     Dates: start: 20240521, end: 20240521
  2. OPDIVO [Suspect]
     Active Substance: NIVOLUMAB
     Indication: Pleural mesothelioma malignant
     Dosage: ONE TIME DOSE
     Route: 041
     Dates: start: 20240521, end: 20240521
  3. ERYTHROCIN [ERYTHROMYCIN STEARATE] [Concomitant]
     Indication: Product used for unknown indication
  4. TRELEGY ELLIPTA [Concomitant]
     Active Substance: FLUTICASONE FUROATE\UMECLIDINIUM BROMIDE\VILANTEROL TRIFENATATE
     Indication: Product used for unknown indication
  5. PROCATEROL HYDROCHLORIDE [Concomitant]
     Active Substance: PROCATEROL HYDROCHLORIDE
     Indication: Product used for unknown indication
  6. ACETAMINOPHEN [Concomitant]
     Active Substance: ACETAMINOPHEN
     Indication: Product used for unknown indication

REACTIONS (6)
  - Immune-mediated dermatitis [Recovering/Resolving]
  - Stevens-Johnson syndrome [Recovering/Resolving]
  - Pleural effusion [Unknown]
  - Bacterial translocation [Recovering/Resolving]
  - Oral candidiasis [Recovering/Resolving]
  - Haemorrhoidal haemorrhage [Recovered/Resolved]

NARRATIVE: CASE EVENT DATE: 20240528
